FAERS Safety Report 19266613 (Version 1)
Quarter: 2021Q2

REPORT INFORMATION
  Report Type: Report from Study
  Country: IT (occurrence: IT)
  Receive Date: 20210518
  Receipt Date: 20210518
  Transmission Date: 20210717
  Serious: Yes (Hospitalization)
  Sender: FDA-Public Use
  Company Number: IT-TEVA-2021-IT-1911482

PATIENT
  Age: 4 Year
  Sex: Male
  Weight: 21 kg

DRUGS (3)
  1. METOTRESSATO TEVA 25 MG/ML SOLUZIONE INIETTABILE [Suspect]
     Active Substance: METHOTREXATE SODIUM
     Indication: ACUTE LYMPHOCYTIC LEUKAEMIA
     Dosage: 4000 MG
     Dates: start: 20200610, end: 20200611
  2. ONDANSETRONE MYLAN GENERICS [Concomitant]
     Indication: PROPHYLAXIS OF NAUSEA AND VOMITING
     Dosage: 12 MG
     Route: 042
     Dates: start: 20200610, end: 20200613
  3. PURINETHOL [Concomitant]
     Active Substance: MERCAPTOPURINE
     Indication: ACUTE LYMPHOCYTIC LEUKAEMIA
     Dosage: 25 MG/M2
     Route: 048
     Dates: start: 20200608, end: 20200613

REACTIONS (1)
  - Acute kidney injury [Recovered/Resolved]

NARRATIVE: CASE EVENT DATE: 20200611
